FAERS Safety Report 23852597 (Version 1)
Quarter: 2024Q2

REPORT INFORMATION
  Report Type: Spontaneous
  Country: EG (occurrence: EG)
  Receive Date: 20240514
  Receipt Date: 20240514
  Transmission Date: 20240715
  Serious: Yes (Disabling, Other)
  Sender: FDA-Public Use
  Company Number: EG-HIKMA PHARMACEUTICALS USA INC.-EG-H14001-24-03931

PATIENT
  Age: 54 Year
  Sex: Female
  Weight: 91 kg

DRUGS (6)
  1. CARBOPLATIN [Suspect]
     Active Substance: CARBOPLATIN
     Dosage: 280 MILLIGRAM, 3W
     Route: 041
     Dates: start: 20240206
  2. CARBOPLATIN [Suspect]
     Active Substance: CARBOPLATIN
     Indication: Breast cancer
     Dosage: 450 MILLIGRAM, 3W
     Route: 041
  3. CARBOPLATIN [Suspect]
     Active Substance: CARBOPLATIN
     Dosage: 450 MILLIGRAM, 3W
     Route: 041
     Dates: start: 20240116
  4. PACLITAXEL [Suspect]
     Active Substance: PACLITAXEL
     Dosage: 280 MILLIGRAM, 3W
     Route: 041
     Dates: start: 20240206
  5. PACLITAXEL [Suspect]
     Active Substance: PACLITAXEL
     Indication: Breast cancer
     Dosage: 300 MILLIGRAM, 3W
     Route: 041
  6. PACLITAXEL [Suspect]
     Active Substance: PACLITAXEL
     Dosage: 300 MILLIGRAM, 3W
     Route: 041
     Dates: start: 20240116

REACTIONS (2)
  - Gait inability [Unknown]
  - Neuropathy peripheral [Not Recovered/Not Resolved]

NARRATIVE: CASE EVENT DATE: 20240116
